FAERS Safety Report 9252910 (Version 1)
Quarter: 2013Q2

REPORT INFORMATION
  Report Type: Spontaneous
  Country: FR (occurrence: FR)
  Receive Date: 20130424
  Receipt Date: 20130424
  Transmission Date: 20140414
  Serious: Yes (Disabling)
  Sender: FDA-Public Use
  Company Number: FR-ABBOTT-13X-056-1080530-00

PATIENT
  Age: 11 Year
  Sex: Male

DRUGS (5)
  1. DEPAKINE [Suspect]
     Indication: EPILEPSY
     Route: 048
     Dates: start: 201212
  2. URBANYL [Suspect]
     Indication: EPILEPSY
     Route: 048
  3. KEPPRA [Suspect]
     Indication: EPILEPSY
     Route: 048
     Dates: start: 20120221, end: 201212
  4. NEURONTIN [Suspect]
     Indication: EPILEPSY
     Route: 048
  5. BOTOX [Suspect]
     Indication: DROOLING
     Route: 065
     Dates: start: 20120315, end: 20120315

REACTIONS (1)
  - Gingival hyperplasia [Unknown]
